FAERS Safety Report 4613526-2 (Version None)
Quarter: 2005Q1

REPORT INFORMATION
  Report Type: 
  Country: None (occurrence: None)
  Receive Date: 20050316
  Receipt Date: 20050309
  Transmission Date: 20050727
  Serious: Yes (Hospitalization)
  Sender: FDA-Public Use
  Company Number: 2005BI000123

PATIENT
  Age: 52 Year
  Sex: Female

DRUGS (8)
  1. AMEVIVE [Suspect]
     Indication: PSORIASIS
     Dosage: 15 MG; QW; IM
     Route: 030
     Dates: start: 20041222
  2. LIPIDIL [Concomitant]
  3. NAPROXEN [Concomitant]
  4. FOLIC ACID [Concomitant]
  5. MERIDIA [Concomitant]
  6. METHOTREXATE [Concomitant]
  7. TYLENOL (CAPLET) [Concomitant]
  8. TYLENOL (CAPLET) [Concomitant]

REACTIONS (7)
  - HAEMOGLOBIN INCREASED [None]
  - HEADACHE [None]
  - HEPATITIS ACUTE [None]
  - HEPATITIS VIRAL [None]
  - MULTI-ORGAN FAILURE [None]
  - MUSCULOSKELETAL STIFFNESS [None]
  - SEPTIC SHOCK [None]
